FAERS Safety Report 7545804-1 (Version None)
Quarter: 2011Q2

REPORT INFORMATION
  Report Type: 
  Country: None (occurrence: None)
  Receive Date: 20110614
  Receipt Date: 20110523
  Transmission Date: 20111010
  Serious: Yes (Hospitalization, Other)
  Sender: FDA-Public Use
  Company Number: US-BAYER-201039076NA

PATIENT
  Sex: Female

DRUGS (3)
  1. TEMAZEPAM [Concomitant]
     Dosage: UNK UNK, HS
     Route: 048
  2. STRATTERA [Concomitant]
     Dosage: UNK UNK, QD
     Route: 048
  3. YASMIN [Suspect]
     Indication: PRODUCT USED FOR UNKNOWN INDICATION
     Dosage: UNK UNK, QD
     Route: 048
     Dates: start: 20050101, end: 20070101

REACTIONS (3)
  - PAIN [None]
  - GALLBLADDER NON-FUNCTIONING [None]
  - CHOLECYSTITIS [None]
